FAERS Safety Report 6138081-X (Version None)
Quarter: 2009Q1

REPORT INFORMATION
  Report Type: 
  Country: None (occurrence: None)
  Receive Date: 20090331
  Receipt Date: 20090323
  Transmission Date: 20090719
  Serious: Yes (Hospitalization)
  Sender: FDA-Public Use
  Company Number: JP-ASTRAZENECA-2008AP05185

PATIENT
  Age: 42 Year
  Sex: Female
  Weight: 52 kg

DRUGS (9)
  1. ANAPEINE INJECTION [Suspect]
     Indication: EPIDURAL ANAESTHESIA
     Route: 008
     Dates: start: 20080527, end: 20080527
  2. ANAPEINE INJECTION [Suspect]
     Indication: ANALGESIA
     Route: 008
     Dates: start: 20080527, end: 20080527
  3. ANAPEINE INJECTION [Suspect]
     Route: 008
     Dates: start: 20080527, end: 20080527
  4. ANAPEINE INJECTION [Suspect]
     Route: 008
     Dates: start: 20080527, end: 20080527
  5. ANAPEINE INJECTION [Suspect]
     Route: 008
     Dates: start: 20080527, end: 20080529
  6. ANAPEINE INJECTION [Suspect]
     Route: 008
     Dates: start: 20080527, end: 20080529
  7. NITROUS OXIDE_OXYGEN [Concomitant]
     Indication: GENERAL ANAESTHESIA
     Dosage: DOSE UNKNOWN
     Route: 055
     Dates: start: 20080527, end: 20080527
  8. SEVOFLURANE [Concomitant]
     Indication: GENERAL ANAESTHESIA
     Dosage: DOSE UNKNOWN
     Route: 055
     Dates: start: 20080527, end: 20080527
  9. FENTANYL CITRATE [Concomitant]
     Indication: GENERAL ANAESTHESIA
     Dosage: DOSE UNKNOWN
     Route: 065
     Dates: start: 20080527, end: 20080527

REACTIONS (2)
  - BACK PAIN [None]
  - MUSCULAR WEAKNESS [None]
